FAERS Safety Report 4841620-X (Version None)
Quarter: 2005Q4

REPORT INFORMATION
  Report Type: 
  Country: None (occurrence: None)
  Receive Date: 20051130
  Receipt Date: 20050909
  Transmission Date: 20060501
  Serious: No
  Sender: FDA-Public Use
  Company Number: US-GLAXOSMITHKLINE-A0573576A

PATIENT
  Age: 46 Year
  Sex: Female
  Weight: 57.3 kg

DRUGS (7)
  1. WELLBUTRIN XL [Suspect]
     Indication: DEPRESSION
     Dosage: 450MG PER DAY
     Route: 048
     Dates: start: 20050819
  2. XANAX [Concomitant]
  3. VITAMIN [Concomitant]
  4. FOSAMAX [Concomitant]
  5. CALCIUM GLUCONATE [Concomitant]
  6. ALLEGRA [Concomitant]
  7. SKELAXIN [Concomitant]

REACTIONS (1)
  - HERPES SIMPLEX [None]
